FAERS Safety Report 5498836-1 (Version None)
Quarter: 2007Q4

REPORT INFORMATION
  Report Type: 
  Country: None (occurrence: None)
  Receive Date: 20071026
  Receipt Date: 20070807
  Transmission Date: 20080405
  Serious: Yes (Other)
  Sender: FDA-Public Use
  Company Number: A0666313A

PATIENT
  Age: 79 Year
  Sex: Female

DRUGS (9)
  1. ADVAIR DISKUS 100/50 [Suspect]
     Indication: ASTHMA
     Dosage: 1PCT PER DAY
     Route: 055
     Dates: start: 20020701
  2. ACIPHEX [Concomitant]
  3. BLOOD PRESSURE MEDICATION [Concomitant]
  4. ATACAND [Concomitant]
  5. DYNACIRC [Concomitant]
  6. SIMVASTATIN [Concomitant]
  7. VITAMIN D [Concomitant]
  8. FOSAMAX [Concomitant]
  9. CALCIUM [Concomitant]

REACTIONS (4)
  - ASTHMA [None]
  - COUGH [None]
  - DRUG INEFFECTIVE [None]
  - SINUSITIS [None]
